FAERS Safety Report 8533114-5 (Version None)
Quarter: 2012Q2

REPORT INFORMATION
  Report Type: 
  Country: None (occurrence: None)
  Receive Date: 20120412
  Receipt Date: 20100105
  Transmission Date: 20120825
  Serious: Yes (Other)
  Sender: FDA-Public Use
  Company Number: PHHY2010US00688

PATIENT
  Age: 60 Year
  Sex: Female

DRUGS (1)
  1. AREDIA [Suspect]
     Dosage: INFUSION

REACTIONS (4)
  - PAIN IN JAW [None]
  - OSTEONECROSIS OF JAW [None]
  - TOOTHACHE [None]
  - INFLUENZA LIKE ILLNESS [None]
